FAERS Safety Report 4981055-2 (Version None)
Quarter: 2006Q2

REPORT INFORMATION
  Report Type: 
  Country: None (occurrence: None)
  Receive Date: 20060418
  Receipt Date: 20060403
  Transmission Date: 20061013
  Serious: Yes (Hospitalization)
  Sender: FDA-Public Use
  Company Number: US200604000462

PATIENT
  Age: 90 Year
  Sex: Female

DRUGS (9)
  1. ZYPREXA [Suspect]
     Indication: HALLUCINATION
     Dosage: 7.5 MG, DAILY (1/D),
     Route: 048
     Dates: start: 20031001, end: 20041201
  2. REMERON [Concomitant]
  3. NEURONTIN [Concomitant]
  4. OXYCONTIN [Concomitant]
  5. ATIVAN [Concomitant]
  6. DIGOXIN (DIGOXIN) AMPOULE [Concomitant]
  7. LISINOPRIL [Concomitant]
  8. GLUCOPHAGE [Concomitant]
  9. INSULIN [Concomitant]

REACTIONS (14)
  - ABNORMAL BEHAVIOUR [None]
  - DIABETES MELLITUS INADEQUATE CONTROL [None]
  - FALL [None]
  - FATIGUE [None]
  - FEAR [None]
  - HALLUCINATION, VISUAL [None]
  - HIP FRACTURE [None]
  - INJURY [None]
  - OVERDOSE [None]
  - PARANOIA [None]
  - PSYCHOMOTOR HYPERACTIVITY [None]
  - UPPER LIMB FRACTURE [None]
  - URINARY TRACT INFECTION [None]
  - VICTIM OF ABUSE [None]
